FAERS Safety Report 14618967 (Version 3)
Quarter: 2018Q2

REPORT INFORMATION
  Report Type: Report from Study
  Country: CH (occurrence: CH)
  Receive Date: 20180309
  Receipt Date: 20180606
  Transmission Date: 20180711
  Serious: Yes (Other)
  Sender: FDA-Public Use
  Company Number: CH-ASTRAZENECA-2018SE27542

PATIENT
  Age: 22038 Day
  Sex: Male
  Weight: 99 kg

DRUGS (1)
  1. DURVALUMAB. [Suspect]
     Active Substance: DURVALUMAB
     Indication: NON-SMALL CELL LUNG CANCER
     Route: 042
     Dates: start: 20171114, end: 20180215

REACTIONS (2)
  - Malignant neoplasm progression [Unknown]
  - Non-small cell lung cancer recurrent [Unknown]

NARRATIVE: CASE EVENT DATE: 20180130
